FAERS Safety Report 4278897-8 (Version None)
Quarter: 2004Q1

REPORT INFORMATION
  Report Type: 
  Country: None (occurrence: None)
  Receive Date: 20040122
  Receipt Date: 20040113
  Transmission Date: 20041129
  Serious: Yes (Hospitalization)
  Sender: FDA-Public Use
  Company Number: US-JNJFOC-20040102662

PATIENT
  Age: 32 Year
  Sex: Female
  Weight: 83.9154 kg

DRUGS (6)
  1. INFLIXIMAB (INFLIXIMAB, RECOMBINANT) LYOPHILIZED POWDER [Suspect]
     Indication: CROHN'S DISEASE
     Dosage: 5 MG/KG, INTRAVENOUS
     Route: 042
     Dates: start: 20030811
  2. PREDNISONE (PREDNISONE) ` [Concomitant]
  3. NARCOTIC ANALGESICS (ANALGESICS) [Concomitant]
  4. ANTIDEPRESSANTS (ANTIDEPRESSANTS) [Concomitant]
  5. ACETAMINOPHEN [Concomitant]
  6. ANTIHISTAMINES (ANTIHISTAMINES) [Concomitant]

REACTIONS (2)
  - FISTULA [None]
  - LUPUS-LIKE SYNDROME [None]
